FAERS Safety Report 18380369 (Version 1)
Quarter: 2020Q4

REPORT INFORMATION
  Report Type: Other
  Country: EG (occurrence: EG)
  Receive Date: 20201013
  Receipt Date: 20201013
  Transmission Date: 20210114
  Serious: Yes (Hospitalization)
  Sender: FDA-Public Use
  Company Number: EG-ROCHE-2694930

PATIENT
  Sex: Male
  Weight: 102 kg

DRUGS (1)
  1. OCREVUS [Suspect]
     Active Substance: OCRELIZUMAB
     Indication: MULTIPLE SCLEROSIS
     Route: 042
     Dates: start: 20190815

REACTIONS (3)
  - Balance disorder [Recovering/Resolving]
  - Fall [Unknown]
  - Lower limb fracture [Recovering/Resolving]

NARRATIVE: CASE EVENT DATE: 202009
